FAERS Safety Report 7120589-1 (Version None)
Quarter: 2010Q4

REPORT INFORMATION
  Report Type: 
  Country: None (occurrence: None)
  Receive Date: 20101124
  Receipt Date: 20101112
  Transmission Date: 20110411
  Serious: Yes (Hospitalization)
  Sender: FDA-Public Use
  Company Number: US-CELGENEUS-163-21880-10111826

PATIENT
  Sex: Male

DRUGS (3)
  1. REVLIMID [Suspect]
     Indication: MYELODYSPLASTIC SYNDROME
     Route: 048
     Dates: start: 20091119
  2. REVLIMID [Suspect]
     Route: 048
     Dates: start: 20091201
  3. PROCRIT [Concomitant]
     Route: 065

REACTIONS (1)
  - THERMAL BURN [None]
